FAERS Safety Report 5464992-4 (Version None)
Quarter: 2007Q3

REPORT INFORMATION
  Report Type: 
  Country: None (occurrence: None)
  Receive Date: 20070820
  Receipt Date: 20070711
  Transmission Date: 20080115
  Serious: No
  Sender: FDA-Public Use
  Company Number: TPA2007A01308

PATIENT
  Age: 54 Year
  Sex: Female
  Weight: 68.0396 kg

DRUGS (3)
  1. ROZEREM [Suspect]
     Indication: INSOMNIA
     Dosage: 8 MG, QHS, PER ORAL
     Route: 048
     Dates: start: 20070610, end: 20070612
  2. WELLBUTRIN [Concomitant]
  3. ATIVAN [Concomitant]

REACTIONS (6)
  - DYSGEUSIA [None]
  - HYPERAESTHESIA [None]
  - INITIAL INSOMNIA [None]
  - NAUSEA [None]
  - PAROSMIA [None]
  - POOR QUALITY SLEEP [None]
